FAERS Safety Report 12385460 (Version 8)
Quarter: 2019Q2

REPORT INFORMATION
  Report Type: Spontaneous
  Country: US (occurrence: US)
  Receive Date: 20160519
  Receipt Date: 20190604
  Transmission Date: 20190711
  Serious: No
  Sender: FDA-Public Use
  Company Number: US-ACTELION-A-NJ2016-136419

PATIENT
  Age: 36 Year
  Sex: Female

DRUGS (10)
  1. LORATADINE. [Concomitant]
     Active Substance: LORATADINE
  2. VITAMIN D [Concomitant]
     Active Substance: VITAMIN D NOS
  3. OPSUMIT [Suspect]
     Active Substance: MACITENTAN
     Indication: PULMONARY ARTERIAL HYPERTENSION
     Dosage: 10 MG, QD
     Route: 048
     Dates: start: 20150421
  4. VITAMINS NOS [Concomitant]
     Active Substance: VITAMINS
  5. DIGOXIN. [Concomitant]
     Active Substance: DIGOXIN
  6. DULERA [Concomitant]
     Active Substance: FORMOTEROL FUMARATE DIHYDRATE\MOMETASONE FUROATE
  7. YAZ [Concomitant]
     Active Substance: DROSPIRENONE\ETHINYL ESTRADIOL
  8. LASIX [Concomitant]
     Active Substance: FUROSEMIDE
  9. UPTRAVI [Suspect]
     Active Substance: SELEXIPAG
     Indication: PULMONARY ARTERIAL HYPERTENSION
     Dosage: 1400 MCG, BID
     Route: 048
     Dates: start: 20160216
  10. ADCIRCA [Concomitant]
     Active Substance: TADALAFIL

REACTIONS (11)
  - Flushing [Not Recovered/Not Resolved]
  - Fatigue [Unknown]
  - Dyspnoea exertional [Unknown]
  - Arteriovenous malformation [Not Recovered/Not Resolved]
  - Headache [Not Recovered/Not Resolved]
  - Anaemia [Not Recovered/Not Resolved]
  - Nausea [Unknown]
  - Telangiectasia [Unknown]
  - Hereditary haemorrhagic telangiectasia [Unknown]
  - Product dose omission [Unknown]
  - Pain in jaw [Not Recovered/Not Resolved]

NARRATIVE: CASE EVENT DATE: 20160501
